FAERS Safety Report 8769866 (Version 1)
Quarter: 2012Q4

REPORT INFORMATION
  Report Type: 
  Country: DE (occurrence: DE)
  Receive Date: 20120906
  Receipt Date: 20120906
  Transmission Date: 20130627
  Serious: Yes (Hospitalization)
  Sender: FDA-Public Use
  Company Number: DE-TEVA-355938GER

PATIENT
  Age: 84 Year
  Sex: Male
  Weight: 70 kg

DRUGS (3)
  1. COTRIMOXAZOL FORTE [Suspect]
     Indication: URINARY TRACT INFECTION
     Dosage: 2 Dosage forms Daily; (1 DF = 800 mg Sulfamethoxazole + 160 mg Trimethoprim)
     Route: 048
     Dates: start: 20120207, end: 20120216
  2. CAPTOPRIL 50 [Concomitant]
     Indication: HYPERTENSION
     Dosage: 50 Milligram Daily;
     Route: 048
  3. CAPTO COMP 50/25 [Concomitant]
     Indication: HYPERTENSION
     Dosage: .5 Dosage forms Daily; (1 DF= 50 mg Captopril + 25 mg Hydrochlorothiazide)
     Route: 048

REACTIONS (2)
  - Thrombocytopenia [Recovered/Resolved]
  - Mouth haemorrhage [Recovered/Resolved]
